FAERS Safety Report 7883424-X (Version None)
Quarter: 2011Q4

REPORT INFORMATION
  Report Type: 
  Country: None (occurrence: None)
  Receive Date: 20111102
  Receipt Date: 20111028
  Transmission Date: 20120403
  Serious: Yes (Death, Other)
  Sender: FDA-Public Use
  Company Number: US-JNJFOC-20111004532

PATIENT
  Age: 6 Decade
  Sex: Female

DRUGS (4)
  1. HEPARIN [Suspect]
     Indication: ANTICOAGULANT THERAPY
     Route: 058
     Dates: start: 20100101, end: 20100101
  2. ELMIRON [Suspect]
     Route: 048
     Dates: end: 20100101
  3. HEPARIN [Suspect]
     Dosage: 5000 UNITS
     Route: 058
  4. ELMIRON [Suspect]
     Indication: CYSTITIS INTERSTITIAL
     Route: 048

REACTIONS (1)
  - POST PROCEDURAL HAEMORRHAGE [None]
